FAERS Safety Report 8852334 (Version 1)
Quarter: 2012Q4

REPORT INFORMATION
  Report Type: 
  Country: US (occurrence: US)
  Receive Date: 20121022
  Receipt Date: 20121022
  Transmission Date: 20130627
  Serious: Yes (Other)
  Sender: FDA-Public Use
  Company Number: US-PFIZER INC-2012262010

PATIENT
  Age: 83 Year
  Sex: Male
  Weight: 56.24 kg

DRUGS (2)
  1. NORVASC [Suspect]
     Indication: HYPERTENSION
     Dosage: 5 mg, daily
  2. GLUCOVANCE [Concomitant]
     Indication: DIABETES MELLITUS
     Dosage: 5/500 mg, 2x/day
     Dates: start: 1992

REACTIONS (1)
  - Dementia Alzheimer^s type [Not Recovered/Not Resolved]
